FAERS Safety Report 5931439-0 (Version None)
Quarter: 2008Q4

REPORT INFORMATION
  Report Type: 
  Country: None (occurrence: None)
  Receive Date: 20081027
  Receipt Date: 20081016
  Transmission Date: 20090506
  Serious: Yes (Other)
  Sender: FDA-Public Use
  Company Number: US-BAXTER-2008BH011293

PATIENT
  Age: 48 Year
  Sex: Male

DRUGS (2)
  1. ACYCLOVIR [Suspect]
     Indication: HERPES ZOSTER
     Route: 042
  2. ACYCLOVIR [Suspect]
     Indication: MENINGITIS
     Route: 042

REACTIONS (1)
  - NEPHROPATHY TOXIC [None]
